FAERS Safety Report 6512566-6 (Version None)
Quarter: 2009Q4

REPORT INFORMATION
  Report Type: 
  Country: None (occurrence: None)
  Receive Date: 20091222
  Receipt Date: 20091217
  Transmission Date: 20100525
  Serious: Yes (Death, Other)
  Sender: FDA-Public Use
  Company Number: CN-MERCK-0912CHN00039

PATIENT
  Age: 40 Year
  Sex: Female

DRUGS (2)
  1. PRIMAXIN [Suspect]
     Indication: BRONCHIECTASIS
     Route: 041
  2. PRIMAXIN [Suspect]
     Indication: CHRONIC OBSTRUCTIVE PULMONARY DISEASE
     Route: 041

REACTIONS (2)
  - CONVULSION [None]
  - DEATH [None]
